FAERS Safety Report 8292074-5 (Version None)
Quarter: 2012Q2

REPORT INFORMATION
  Report Type: 
  Country: None (occurrence: None)
  Receive Date: 20120417
  Receipt Date: 20120402
  Transmission Date: 20120825
  Serious: Yes (Other)
  Sender: FDA-Public Use
  Company Number: PHHY2012PL029563

PATIENT
  Age: 62 Year
  Sex: Male

DRUGS (4)
  1. IMURAN [Concomitant]
  2. OMEPRAZOLE [Concomitant]
     Dosage: 20 MG, UNK
  3. PREDNISONE [Concomitant]
     Dosage: 5 MG, UNK
  4. NEORAL [Suspect]
     Indication: IMMUNOSUPPRESSION
     Dosage: 125-100

REACTIONS (8)
  - ATRIAL FIBRILLATION [None]
  - URETERAL NECROSIS [None]
  - COMPLICATIONS OF TRANSPLANTED KIDNEY [None]
  - CALCULUS URINARY [None]
  - URINARY TRACT INFECTION [None]
  - MELANOCYTIC NAEVUS [None]
  - PROSTATIC ADENOMA [None]
  - BASAL CELL CARCINOMA [None]
